FAERS Safety Report 17412135 (Version 4)
Quarter: 2020Q2

REPORT INFORMATION
  Report Type: Spontaneous
  Country: US (occurrence: US)
  Receive Date: 20200213
  Receipt Date: 20200602
  Transmission Date: 20200713
  Serious: Yes (Other)
  Sender: FDA-Public Use
  Company Number: US-GILEAD-2020-0450634

PATIENT
  Age: 49 Year
  Sex: Male

DRUGS (99)
  1. TRUVADA [Suspect]
     Active Substance: EMTRICITABINE\TENOFOVIR DISOPROXIL FUMARATE
     Dosage: 1 DOSAGE FORM
     Route: 048
     Dates: start: 200811, end: 20161211
  2. TIVICAY [Concomitant]
     Active Substance: DOLUTEGRAVIR SODIUM
  3. CITALOPRAM [Concomitant]
     Active Substance: CITALOPRAM HYDROBROMIDE
  4. TRIUMEQ [Concomitant]
     Active Substance: ABACAVIR SULFATE\DOLUTEGRAVIR SODIUM\LAMIVUDINE
  5. HYDROCORTISONE VALERATE. [Concomitant]
     Active Substance: HYDROCORTISONE VALERATE
  6. BEPREVE [Concomitant]
     Active Substance: BEPOTASTINE BESILATE
  7. ESZOPICLONE. [Concomitant]
     Active Substance: ESZOPICLONE
  8. ALLEGRA [Concomitant]
     Active Substance: FEXOFENADINE HYDROCHLORIDE
  9. DOLUTEGRAVIR [Concomitant]
     Active Substance: DOLUTEGRAVIR
  10. TYLENOL WITH CODEINE [Concomitant]
     Active Substance: ACETAMINOPHEN\CODEINE PHOSPHATE
  11. DOXEPIN [Concomitant]
     Active Substance: DOXEPIN
  12. METHOCARBAMOL. [Concomitant]
     Active Substance: METHOCARBAMOL
  13. AVODART [Concomitant]
     Active Substance: DUTASTERIDE
  14. CARVEDILOL. [Concomitant]
     Active Substance: CARVEDILOL
  15. PROGRAF [Concomitant]
     Active Substance: TACROLIMUS
  16. AZITHROMYCIN ANHYDROUS. [Concomitant]
     Active Substance: AZITHROMYCIN ANHYDROUS
  17. MIRALAX [Concomitant]
     Active Substance: POLYETHYLENE GLYCOL 3350
  18. BUPROPION. [Concomitant]
     Active Substance: BUPROPION
  19. CODEINE GUAIFENESIN [Concomitant]
     Active Substance: CODEINE PHOSPHATE\GUAIFENESIN
  20. NAPROXEN. [Suspect]
     Active Substance: NAPROXEN
     Indication: PRODUCT USED FOR UNKNOWN INDICATION
     Dosage: 500 MG, PRN
     Route: 048
  21. MELOXICAM, LAMOTRIGINE, LIDOCAINE, PRILOCAINE [Concomitant]
  22. PREZCOBIX [Concomitant]
     Active Substance: COBICISTAT\DARUNAVIR ETHANOLATE
  23. RENVELA [Concomitant]
     Active Substance: SEVELAMER CARBONATE
  24. FOLBIC [Concomitant]
     Active Substance: CYANOCOBALAMIN\FOLIC ACID\PYRIDOXINE
  25. SUCRALFATE. [Concomitant]
     Active Substance: SUCRALFATE
  26. FINASTERIDE. [Concomitant]
     Active Substance: FINASTERIDE
  27. POLYETHYLENE GLYCOL [Concomitant]
     Active Substance: POLYETHYLENE GLYCOLS
  28. FUROSEMIDE. [Concomitant]
     Active Substance: FUROSEMIDE
  29. FLUOROURACIL. [Concomitant]
     Active Substance: FLUOROURACIL
  30. SENSIPAR [Concomitant]
     Active Substance: CINACALCET HYDROCHLORIDE
  31. PREDNISONE. [Concomitant]
     Active Substance: PREDNISONE
  32. MYCOPHENOLIC ACID. [Concomitant]
     Active Substance: MYCOPHENOLIC ACID
  33. SUMATRIPTAN. [Concomitant]
     Active Substance: SUMATRIPTAN
  34. ESCITALOPRAM OXALATE. [Concomitant]
     Active Substance: ESCITALOPRAM OXALATE
  35. AZT [Concomitant]
     Active Substance: ZIDOVUDINE
  36. ASPIRIN (E.C.) [Concomitant]
     Active Substance: ASPIRIN
  37. DENTALL [Concomitant]
  38. LOPERAMIDE [Concomitant]
     Active Substance: LOPERAMIDE
  39. ZOMIG [Concomitant]
     Active Substance: ZOLMITRIPTAN
  40. PERIOGARD [Concomitant]
     Active Substance: CHLORHEXIDINE GLUCONATE
  41. NEPHRO VITE RX [Concomitant]
     Active Substance: ASCORBIC ACID\BIOTIN\CALCIUM PANTOTHENATE\CYANOCOBALAMIN\FOLIC ACID\NIACINAMIDE\PYRIDOXINE HYDROCHLORIDE\RIBOFLAVIN\THIAMINE MONONITRATE
  42. PRAMOSONE E [Concomitant]
     Active Substance: HYDROCORTISONE ACETATE\PRAMOXINE HYDROCHLORIDE
  43. REQUIP [Concomitant]
     Active Substance: ROPINIROLE HYDROCHLORIDE
  44. DAPSONE. [Concomitant]
     Active Substance: DAPSONE
  45. NEURONTIN [Concomitant]
     Active Substance: GABAPENTIN
  46. LEVOFLOXACIN. [Concomitant]
     Active Substance: LEVOFLOXACIN
  47. DEPAKOTE [Concomitant]
     Active Substance: DIVALPROEX SODIUM
  48. COMBIVIR [Concomitant]
     Active Substance: LAMIVUDINE\ZIDOVUDINE
  49. CELEBREX [Concomitant]
     Active Substance: CELECOXIB
  50. ELAVIL [ALLOPURINOL] [Concomitant]
     Active Substance: ALLOPURINOL
  51. CHLORHEXIDINE GLUCONATE. [Concomitant]
     Active Substance: CHLORHEXIDINE GLUCONATE
  52. CORDRAN [Concomitant]
     Active Substance: FLURANDRENOLIDE
  53. MOMETASONE FUROATE. [Concomitant]
     Active Substance: MOMETASONE FUROATE
  54. NEXIUM I.V. [Concomitant]
     Active Substance: ESOMEPRAZOLE SODIUM
  55. DEPO-TESTOSTERONE [Concomitant]
     Active Substance: TESTOSTERONE CYPIONATE
  56. LISINOPRIL. [Concomitant]
     Active Substance: LISINOPRIL
  57. HYDROXYZINE HCL [Concomitant]
     Active Substance: HYDROXYZINE HYDROCHLORIDE
  58. ZERIT [Concomitant]
     Active Substance: STAVUDINE
  59. RENAGEL [SEVELAMER CARBONATE] [Concomitant]
  60. MELATONIN [Concomitant]
     Active Substance: MELATONIN
  61. ATOVAQUONE. [Concomitant]
     Active Substance: ATOVAQUONE
  62. NYSTATIN. [Concomitant]
     Active Substance: NYSTATIN
  63. LEVALBUTEROL HCL [Concomitant]
     Active Substance: LEVALBUTEROL HYDROCHLORIDE
  64. FIORICET [Concomitant]
     Active Substance: ACETAMINOPHEN\BUTALBITAL\CAFFEINE
  65. TERIPARATIDE RECOMBINANT [Concomitant]
  66. DIVALPROEX [Concomitant]
     Active Substance: DIVALPROEX SODIUM
  67. TRUVADA [Suspect]
     Active Substance: EMTRICITABINE\TENOFOVIR DISOPROXIL FUMARATE
     Indication: HIV INFECTION
     Dosage: 1 DOSAGE FORM, QD
     Route: 048
     Dates: start: 201004, end: 201612
  68. ANDRODERM [Concomitant]
     Active Substance: TESTOSTERONE
  69. TRIAMCINOLONE ACETONIDE. [Concomitant]
     Active Substance: TRIAMCINOLONE ACETONIDE
  70. AMITRIPTYLINE [Concomitant]
     Active Substance: AMITRIPTYLINE
  71. VIAGRA [Concomitant]
     Active Substance: SILDENAFIL CITRATE
  72. MUCINEX [Concomitant]
     Active Substance: GUAIFENESIN
  73. EMTRICITABINE [Concomitant]
     Active Substance: EMTRICITABINE
  74. ALENDRONATE SODIUM. [Concomitant]
     Active Substance: ALENDRONATE SODIUM
  75. ZOLMITRIPTAN. [Concomitant]
     Active Substance: ZOLMITRIPTAN
  76. ACYCLOVIR ABBOTT VIAL [Concomitant]
  77. MUPIROCIN. [Concomitant]
     Active Substance: MUPIROCIN
  78. PROMETHAZINE [Concomitant]
     Active Substance: PROMETHAZINE HYDROCHLORIDE
  79. RESTASIS [Concomitant]
     Active Substance: CYCLOSPORINE
  80. BACLOFEN. [Concomitant]
     Active Substance: BACLOFEN
  81. MONTELUKAST [Concomitant]
     Active Substance: MONTELUKAST SODIUM
  82. CLONIDINE. [Concomitant]
     Active Substance: CLONIDINE
  83. AMLODIPINE BESYLATE. [Concomitant]
     Active Substance: AMLODIPINE BESYLATE
  84. MYFORTIC [Concomitant]
     Active Substance: MYCOPHENOLATE SODIUM
  85. VALCYTE [Concomitant]
     Active Substance: VALGANCICLOVIR HYDROCHLORIDE
  86. PROTONIX [OMEPRAZOLE] [Concomitant]
     Active Substance: OMEPRAZOLE
  87. TYLENOL EXTRA STRENGTH [Concomitant]
     Active Substance: ACETAMINOPHEN
  88. BACTRIM [Concomitant]
     Active Substance: SULFAMETHOXAZOLE\TRIMETHOPRIM
  89. MAGNESIUM OXIDE. [Concomitant]
     Active Substance: MAGNESIUM OXIDE
  90. DILAUDID [Concomitant]
     Active Substance: HYDROMORPHONE HYDROCHLORIDE
  91. BIKTARVY [Concomitant]
     Active Substance: BICTEGRAVIR SODIUM\EMTRICITABINE\TENOFOVIR ALAFENAMIDE FUMARATE
  92. ODEFSEY [Concomitant]
     Active Substance: EMTRICITABINE\RILPIVIRINE HYDROCHLORIDE\TENOFOVIR ALAFENAMIDE FUMARATE
  93. FLUTICASONE. [Concomitant]
     Active Substance: FLUTICASONE
  94. GABAPENTIN. [Concomitant]
     Active Substance: GABAPENTIN
  95. ISENTRESS [Concomitant]
     Active Substance: RALTEGRAVIR POTASSIUM
  96. TRIGLIDE [Concomitant]
     Active Substance: FENOFIBRATE
  97. LAMIVUDINE. [Concomitant]
     Active Substance: LAMIVUDINE
  98. IMIQUIMOD. [Concomitant]
     Active Substance: IMIQUIMOD
  99. OXYCODONE/APAP [OXYCODONE HYDROCHLORIDE;PARACETAMOL] [Concomitant]

REACTIONS (17)
  - End stage renal disease [Not Recovered/Not Resolved]
  - Osteopenia [Not Recovered/Not Resolved]
  - Emotional distress [Unknown]
  - Renal failure [Unknown]
  - Upper limb fracture [Not Recovered/Not Resolved]
  - Fracture [Unknown]
  - Economic problem [Unknown]
  - Hip arthroplasty [Not Recovered/Not Resolved]
  - Carpal tunnel syndrome [Not Recovered/Not Resolved]
  - Anhedonia [Unknown]
  - Osteoporosis [Not Recovered/Not Resolved]
  - Spinal cord injury [Not Recovered/Not Resolved]
  - Anxiety [Unknown]
  - Chronic kidney disease [Not Recovered/Not Resolved]
  - Rotator cuff repair [Not Recovered/Not Resolved]
  - Bone density decreased [Unknown]
  - Pain [Unknown]

NARRATIVE: CASE EVENT DATE: 2011
